FAERS Safety Report 8231879-3 (Version None)
Quarter: 2012Q1

REPORT INFORMATION
  Report Type: 
  Country: None (occurrence: None)
  Receive Date: 20120323
  Receipt Date: 20120320
  Transmission Date: 20120608
  Serious: Yes (Hospitalization)
  Sender: FDA-Public Use
  Company Number: FR-ROCHE-1047604

PATIENT
  Sex: Female
  Weight: 58 kg

DRUGS (4)
  1. CARBOPLATIN [Suspect]
     Indication: OVARIAN CANCER
     Route: 042
     Dates: start: 20110908
  2. AVASTIN [Suspect]
     Route: 042
  3. AVASTIN [Suspect]
     Indication: OVARIAN CANCER
     Dosage: LAST DOSSE PRIOR TO SAE: 23/FEB/2012
     Route: 042
     Dates: start: 20110908, end: 20120315
  4. PACLITAXEL [Suspect]
     Indication: OVARIAN CANCER
     Route: 042
     Dates: start: 20110908

REACTIONS (1)
  - CALCULUS URETERIC [None]
